FAERS Safety Report 8048009-3 (Version None)
Quarter: 2012Q1

REPORT INFORMATION
  Report Type: 
  Country: None (occurrence: None)
  Receive Date: 20120117
  Receipt Date: 20120110
  Transmission Date: 20120608
  Serious: Yes (Other)
  Sender: FDA-Public Use
  Company Number: GB-ACCORD-011401

PATIENT
  Age: 48 Year
  Sex: Male

DRUGS (6)
  1. FLUOROURACIL [Suspect]
     Indication: GASTROINTESTINAL CARCINOMA
     Dosage: UNK
     Dates: end: 20110809
  2. OXALIPLATIN [Suspect]
  3. IRINOTECAN HCL [Suspect]
     Dates: end: 20110809
  4. AVASTIN [Suspect]
     Dosage: UNK
     Dates: end: 20110727
  5. LEUCOVORIN CALCIUM [Concomitant]
     Dates: end: 20110809
  6. CAPECITABINE [Suspect]

REACTIONS (2)
  - DISEASE PROGRESSION [None]
  - HAND FRACTURE [None]
